FAERS Safety Report 15808718 (Version 1)
Quarter: 2019Q1

REPORT INFORMATION
  Report Type: Spontaneous
  Country: RU (occurrence: RU)
  Receive Date: 20190110
  Receipt Date: 20190110
  Transmission Date: 20190417
  Serious: No
  Sender: FDA-Public Use
  Company Number: RU-B. BRAUN MEDICAL INC.-2061064

PATIENT
  Age: 54 Year
  Sex: Male

DRUGS (1)
  1. DEXTROSE INJECTIONS USP 0264-7510-00 0264-7510-20 [Suspect]
     Active Substance: DEXTROSE

REACTIONS (1)
  - Chills [None]
